FAERS Safety Report 6954792-8 (Version None)
Quarter: 2010Q3

REPORT INFORMATION
  Report Type: 
  Country: None (occurrence: None)
  Receive Date: 20100830
  Receipt Date: 20100825
  Transmission Date: 20110219
  Serious: Yes (Other)
  Sender: FDA-Public Use
  Company Number: US-ASTRAZENECA-2006UW11457

PATIENT
  Age: 24735 Day
  Sex: Female

DRUGS (19)
  1. SEROQUEL [Suspect]
     Indication: INSOMNIA
     Dosage: 100-200 MG TWO TABLETS AT NIGHT
     Route: 048
     Dates: start: 19991201, end: 20011108
  2. SEROQUEL [Suspect]
     Route: 048
  3. ZYPREXA [Concomitant]
     Dates: start: 19980601, end: 20000316
  4. THORAZINE [Concomitant]
     Dates: start: 19980601
  5. STELAZINE [Concomitant]
     Dates: start: 19980601
  6. HALDOL [Concomitant]
     Dates: start: 19980601
  7. LOTENSIN [Concomitant]
     Route: 048
     Dates: start: 19980601
  8. DEPAKOTE [Concomitant]
     Dates: start: 19980601
  9. ISONIAZID [Concomitant]
     Dates: start: 19980226
  10. AMBIEN CR [Concomitant]
     Route: 048
     Dates: start: 19990611
  11. AMBIEN CR [Concomitant]
     Dates: start: 20080114
  12. GLYNASE [Concomitant]
     Dates: start: 20000316
  13. GLYNASE [Concomitant]
     Dates: start: 20080114
  14. HYDROCHLOROTHIAZIDE [Concomitant]
     Dates: start: 20080114
  15. ETODOLAC [Concomitant]
     Dates: start: 20080114
  16. VASOTEC [Concomitant]
     Dates: start: 20080114
  17. VASOTEC [Concomitant]
     Dates: start: 20081110
  18. LEXAPRO [Concomitant]
  19. MECLIZINE HCL [Concomitant]
     Dosage: 1 EVERY 6 HOURS AS NEEDED
     Dates: start: 20081110

REACTIONS (2)
  - NEUROPATHY PERIPHERAL [None]
  - TYPE 2 DIABETES MELLITUS [None]
